FAERS Safety Report 8762820 (Version 3)
Quarter: 2012Q4

REPORT INFORMATION
  Report Type: 
  Country: JP (occurrence: JP)
  Receive Date: 20120830
  Receipt Date: 20121008
  Transmission Date: 20130627
  Serious: Yes (Hospitalization, Other)
  Sender: FDA-Public Use
  Company Number: JP-PFIZER INC-2012195085

PATIENT
  Age: 87 Year
  Sex: Female
  Weight: 45.4 kg

DRUGS (14)
  1. SILDENAFIL CITRATE [Suspect]
     Indication: PULMONARY HYPERTENSION
     Dosage: 20 mg, 1x/day
     Route: 048
     Dates: start: 20120516, end: 20120520
  2. SILDENAFIL CITRATE [Suspect]
     Dosage: 20 mg, 2x/day
     Route: 048
     Dates: start: 20120521, end: 20120605
  3. SILDENAFIL CITRATE [Suspect]
     Dosage: 20 mg, 3x/day
     Route: 048
     Dates: start: 20120606
  4. BERASUS [Concomitant]
     Indication: PULMONARY HYPERTENSION
     Dosage: UNK
     Route: 048
  5. LASIX [Concomitant]
     Dosage: UNK
     Route: 048
  6. ALDACTONE-A [Concomitant]
     Dosage: UNK
     Route: 048
  7. LOXONIN [Concomitant]
     Dosage: UNK
     Route: 048
  8. ZETIA [Concomitant]
     Dosage: UNK
     Route: 048
  9. URINORM [Concomitant]
     Dosage: UNK
     Route: 048
  10. THEOLONG [Concomitant]
     Dosage: UNK
     Route: 048
  11. PLETAAL [Concomitant]
     Dosage: UNK
     Route: 048
  12. ALLELOCK [Concomitant]
     Dosage: UNK
     Route: 048
  13. TAKEPRON OD [Concomitant]
     Dosage: UNK
     Route: 048
  14. SELBEX [Concomitant]
     Dosage: UNK
     Route: 048

REACTIONS (1)
  - Femur fracture [Recovered/Resolved with Sequelae]
